FAERS Safety Report 10853480 (Version 1)
Quarter: 2015Q1

REPORT INFORMATION
  Report Type: Spontaneous
  Country: JP (occurrence: JP)
  Receive Date: 20150223
  Receipt Date: 20150223
  Transmission Date: 20150721
  Serious: Yes (Other)
  Sender: FDA-Public Use
  Company Number: JP-CIPLA LTD.-2015JP01236

PATIENT

DRUGS (4)
  1. CARBOPLATIN. [Suspect]
     Active Substance: CARBOPLATIN
     Dosage: AUC 5 OR 6 MG/ML/MIN ON DAY1 REPEATED EVERY 21 DAYS FOR 3 TO 6 CYCLES
     Route: 042
  2. BEVACIZUMAB [Suspect]
     Active Substance: BEVACIZUMAB
     Dosage: 15 MG/KG EVERY 21 DAYS
     Route: 042
  3. BEVACIZUMAB [Suspect]
     Active Substance: BEVACIZUMAB
     Dosage: 15 MG/KG FOR DAY 1, REPEATED EVERY 21 DAYS FOR 3 TO 6 CYCLES
     Route: 042
  4. PACLITAXEL. [Suspect]
     Active Substance: PACLITAXEL
     Dosage: 200 MG/M2 ON DAY 1, REPEATED EVERY 21 DAYS FOR 3 TO 6 CYCLES
     Route: 042

REACTIONS (1)
  - Dyspnoea [Unknown]
